FAERS Safety Report 5090096-9 (Version None)
Quarter: 2006Q3

REPORT INFORMATION
  Report Type: 
  Country: None (occurrence: None)
  Receive Date: 20060828
  Receipt Date: 20060125
  Transmission Date: 20061208
  Serious: Yes (Hospitalization)
  Sender: FDA-Public Use
  Company Number: US-ROCHE-433858

PATIENT
  Age: 16 Year
  Sex: Male
  Weight: 59 kg

DRUGS (2)
  1. ACCUTANE [Suspect]
     Indication: ACNE
     Route: 048
     Dates: start: 20010515, end: 20011215
  2. ACCUTANE [Suspect]
     Route: 048
     Dates: start: 20020506, end: 20020815

REACTIONS (6)
  - COLITIS ULCERATIVE [None]
  - GASTRITIS [None]
  - GASTROOESOPHAGEAL REFLUX DISEASE [None]
  - ILEUS [None]
  - INFLAMMATORY BOWEL DISEASE [None]
  - OESOPHAGITIS [None]
